FAERS Safety Report 17605278 (Version 1)
Quarter: 2020Q1

REPORT INFORMATION
  Report Type: Report from Study
  Country: BR (occurrence: BR)
  Receive Date: 20200331
  Receipt Date: 20200331
  Transmission Date: 20200409
  Serious: Yes (Other)
  Sender: FDA-Public Use
  Company Number: BR-UCBSA-2020002607

PATIENT
  Age: 72 Year
  Sex: Female
  Weight: 62 kg

DRUGS (8)
  1. GLIFAGE [Concomitant]
     Active Substance: METFORMIN HYDROCHLORIDE
     Indication: DIABETES MELLITUS
     Dosage: 1 DOSAGE FORM, 2X/DAY (BID)
     Route: 048
  2. COSOPT [Concomitant]
     Active Substance: DORZOLAMIDE HYDROCHLORIDE\TIMOLOL MALEATE
     Indication: GLAUCOMA
     Dosage: 1 DROP, 2X/DAY (BID)
     Route: 047
  3. SIMVASTATIN. [Concomitant]
     Active Substance: SIMVASTATIN
     Indication: PRODUCT USED FOR UNKNOWN INDICATION
  4. CERTOLIZUMAB PEGOL ASP [Suspect]
     Active Substance: CERTOLIZUMAB PEGOL
     Indication: ANKYLOSING SPONDYLITIS
     Dosage: 400 MILLIGRAM, EV 4 WEEKS
     Route: 058
  5. ATENOLOL. [Concomitant]
     Active Substance: ATENOLOL
     Indication: HYPERTENSION
     Dosage: 1 DOSAGE FORM, ONCE DAILY (QD)
     Route: 048
  6. ESPIRONOLACTONA [Concomitant]
     Active Substance: SPIRONOLACTONE
     Indication: HYPERTENSION
     Dosage: 1 DOSAGE FORM, ONCE DAILY (QD)
     Route: 048
  7. AMLODIPINE [Concomitant]
     Active Substance: AMLODIPINE BESYLATE
     Indication: HYPERTENSION
     Dosage: 1 DOSAGE FORM, ONCE DAILY (QD)
     Route: 048
  8. LOSARTAN. [Concomitant]
     Active Substance: LOSARTAN
     Indication: HYPERTENSION
     Dosage: 2 DOSAGE FORM, 2X/DAY (BID)
     Route: 048

REACTIONS (4)
  - Atrophy [Not Recovered/Not Resolved]
  - Diabetes mellitus [Unknown]
  - Back pain [Not Recovered/Not Resolved]
  - Mass [Recovered/Resolved]

NARRATIVE: CASE EVENT DATE: 201911
